FAERS Safety Report 5719383-5 (Version None)
Quarter: 2008Q2

REPORT INFORMATION
  Report Type: 
  Country: None (occurrence: None)
  Receive Date: 20080428
  Receipt Date: 20080423
  Transmission Date: 20081010
  Serious: Yes (Other)
  Sender: FDA-Public Use
  Company Number: US-KINGPHARMUSA00001-K200800464

PATIENT

DRUGS (4)
  1. ALTACE [Suspect]
     Dosage: 1.25 MG, QD
     Route: 048
     Dates: start: 20080108, end: 20080215
  2. ELEVIT                             /01730301/ [Concomitant]
     Dosage: UNK, QD
     Route: 048
     Dates: start: 20080215
  3. FISH OIL [Concomitant]
     Dosage: UNK, QD
     Route: 048
     Dates: start: 20080215
  4. MEGAFOL [Concomitant]
     Dosage: UNK, QD
     Route: 048
     Dates: start: 20080215

REACTIONS (3)
  - ABORTION SPONTANEOUS [None]
  - DRUG EXPOSURE DURING PREGNANCY [None]
  - VAGINAL HAEMORRHAGE [None]
